FAERS Safety Report 7001192-0 (Version None)
Quarter: 2010Q3

REPORT INFORMATION
  Report Type: 
  Country: None (occurrence: None)
  Receive Date: 20100920
  Receipt Date: 20070627
  Transmission Date: 20110219
  Serious: Yes (Other)
  Sender: FDA-Public Use
  Company Number: US-ASTRAZENECA-2007UW05817

PATIENT
  Sex: Female
  Weight: 78 kg

DRUGS (4)
  1. SEROQUEL [Suspect]
     Route: 048
     Dates: start: 20040413
  2. KLONOPIN [Concomitant]
     Indication: ANXIETY
     Dosage: 1-2 MG
     Dates: start: 19990819
  3. ZOLOFT [Concomitant]
     Dosage: 50-100 MG
     Dates: start: 19990819
  4. NEURONTIN [Concomitant]
     Dates: start: 20000201

REACTIONS (3)
  - DIABETES MELLITUS [None]
  - KETOACIDOSIS [None]
  - PANCREATITIS [None]
